FAERS Safety Report 17261611 (Version 1)
Quarter: 2020Q1

REPORT INFORMATION
  Report Type: Spontaneous
  Country: NL (occurrence: NL)
  Receive Date: 20200113
  Receipt Date: 20200113
  Transmission Date: 20200409
  Serious: Yes (Other)
  Sender: FDA-Public Use
  Company Number: NL-TEVA-2020-NL-1167086

PATIENT
  Sex: Female
  Weight: 54 kg

DRUGS (2)
  1. METHOTREXATE (METHOTREXATE SODIUM) [Suspect]
     Active Substance: METHOTREXATE SODIUM
     Indication: DERMATITIS ATOPIC
     Dosage: TABLET, 2.5 MG (MILLIGRAM), ONCE A DAY, 2
     Dates: start: 2014, end: 20140220
  2. ENKEL VASELINECREMES [Concomitant]

REACTIONS (1)
  - Thrombosis [Recovered/Resolved]
